FAERS Safety Report 6091955-0 (Version None)
Quarter: 2009Q1

REPORT INFORMATION
  Report Type: 
  Country: None (occurrence: None)
  Receive Date: 20090225
  Receipt Date: 20081028
  Transmission Date: 20090719
  Serious: No
  Sender: FDA-Public Use
  Company Number: A0753894A

PATIENT
  Age: 54 Year
  Sex: Female

DRUGS (16)
  1. VALTREX [Suspect]
     Indication: DRY MOUTH
     Dosage: 500MG PER DAY
     Route: 048
     Dates: start: 20050101
  2. CYMBALTA [Concomitant]
  3. SYNTHROID [Concomitant]
  4. ADDERALL 10 [Concomitant]
  5. LORAZEPAM [Concomitant]
  6. CARDURA [Concomitant]
  7. VITAMIN B COMPLEX WITH C [Concomitant]
  8. ONE A DAY VITAMIN [Concomitant]
  9. CALCIUM WITH VITAMIN D [Concomitant]
  10. SINGULAIR [Concomitant]
  11. CLARITIN [Concomitant]
  12. NEXIUM [Concomitant]
  13. PROVIGIL [Concomitant]
  14. RANITIDINE [Concomitant]
  15. AMLODIPINE BESYLATE [Concomitant]
  16. VIVELLE-DOT [Concomitant]

REACTIONS (1)
  - DRUG INEFFECTIVE [None]
